FAERS Safety Report 9071532 (Version 1)
Quarter: 2013Q1

REPORT INFORMATION
  Report Type: Report from Study
  Country: US (occurrence: US)
  Receive Date: 20130129
  Receipt Date: 20130129
  Transmission Date: 20140127
  Serious: No
  Sender: FDA-Public Use
  Company Number: US-ABBOTT-12P-163-0926290-00

PATIENT
  Age: 33 Year
  Sex: Male

DRUGS (5)
  1. HUMIRA 40 MG/0.8 ML PEN [Suspect]
     Indication: PSORIASIS
     Dates: start: 201109
  2. HUMIRA 40 MG/0.8 ML PEN [Suspect]
     Dates: start: 201110
  3. LISINOPRIL [Concomitant]
     Indication: HYPERTENSION
  4. UNKNOWN MEDICATION FOR IRRITABLE BOWEL [Concomitant]
     Indication: IRRITABLE BOWEL SYNDROME
  5. ANTIDEPRESSANTS [Concomitant]
     Indication: DEPRESSION
     Dates: start: 201111

REACTIONS (1)
  - Drug ineffective [Not Recovered/Not Resolved]
